FAERS Safety Report 4872461-5 (Version None)
Quarter: 2005Q4

REPORT INFORMATION
  Report Type: 
  Country: None (occurrence: None)
  Receive Date: 20051201
  Receipt Date: 20050804
  Transmission Date: 20060501
  Serious: No
  Sender: FDA-Public Use
  Company Number: 2005PV000824

PATIENT
  Age: 60 Year
  Sex: Female
  Weight: 76.2043 kg

DRUGS (18)
  1. BYETTA [Suspect]
     Indication: DIABETES MELLITUS NON-INSULIN-DEPENDENT
     Dosage: 5 MCG;BID;SC
     Route: 058
     Dates: start: 20050705
  2. AVANDIA [Concomitant]
  3. DIOVAN [Concomitant]
  4. METFORMIN HCL [Concomitant]
  5. ACIPHEX [Concomitant]
  6. ALTACE [Concomitant]
  7. LIPITOR [Concomitant]
  8. FISH OIL [Concomitant]
  9. LUTEIN [Concomitant]
  10. ASCORBIC ACID [Concomitant]
  11. MAGNESIUM [Concomitant]
  12. MULTIVITAMIN [Concomitant]
  13. L-CARNITINE [Concomitant]
  14. CHROMIUM PICOLONATE [Concomitant]
  15. CRANBERRY EXTRACT [Concomitant]
  16. GLUCOSAMINE/CHONDROITIN [Concomitant]
  17. COENZYME Q10 [Concomitant]
  18. CONJUGATE LINOLEIC ACID [Concomitant]

REACTIONS (1)
  - MEDICATION ERROR [None]
